FAERS Safety Report 5623009-9 (Version None)
Quarter: 2008Q1

REPORT INFORMATION
  Report Type: 
  Country: None (occurrence: None)
  Receive Date: 20080212
  Receipt Date: 20080204
  Transmission Date: 20080703
  Serious: Yes (Hospitalization)
  Sender: FDA-Public Use
  Company Number: FR-AVENTIS-200810467FR

PATIENT
  Age: 50 Year
  Sex: Female

DRUGS (2)
  1. TAXOTERE [Suspect]
     Indication: BREAST CANCER
     Route: 042
     Dates: start: 19980101, end: 19980101
  2. DOXORUBICIN HCL [Concomitant]
     Dates: start: 19980101, end: 19980101

REACTIONS (1)
  - DEMYELINATING POLYNEUROPATHY [None]
